FAERS Safety Report 7641203-2 (Version None)
Quarter: 2011Q3

REPORT INFORMATION
  Report Type: 
  Country: None (occurrence: None)
  Receive Date: 20110728
  Receipt Date: 20110721
  Transmission Date: 20111222
  Serious: Yes (Death, Hospitalization, Other)
  Sender: FDA-Public Use
  Company Number: PHHY2011BR65866

PATIENT
  Sex: Female

DRUGS (1)
  1. DIOVAN [Suspect]
     Indication: HYPERTENSION
     Dosage: 1 TABLET 1 DAY

REACTIONS (6)
  - ABDOMINAL DISCOMFORT [None]
  - VOMITING [None]
  - CARDIO-RESPIRATORY ARREST [None]
  - DIVERTICULITIS [None]
  - DEATH [None]
  - HAEMATOCHEZIA [None]
